FAERS Safety Report 21221872 (Version 2)
Quarter: 2022Q3

REPORT INFORMATION
  Report Type: Spontaneous
  Country: JP (occurrence: None)
  Receive Date: 20220817
  Receipt Date: 20220822
  Transmission Date: 20221027
  Serious: Yes (Death)
  Sender: FDA-Public Use
  Company Number: 2022A288008

PATIENT
  Age: 71 Year
  Sex: Female

DRUGS (6)
  1. ONDEXXYA [Suspect]
     Active Substance: ANDEXANET ALFA
     Indication: Product used for unknown indication
     Dosage: 400 MG INTRAVENOUSLY AT A RATE OF 30 MG/MIN FOLLOWED BY 480 MG INTRAVENOUSLY AT A RATE OF 4 MG/MI...
     Route: 042
     Dates: start: 20220810
  2. ONDEXXYA [Suspect]
     Active Substance: ANDEXANET ALFA
     Indication: Gastric haemorrhage
     Dosage: 400 MG INTRAVENOUSLY AT A RATE OF 30 MG/MIN FOLLOWED BY 480 MG INTRAVENOUSLY AT A RATE OF 4 MG/MI...
     Route: 042
     Dates: start: 20220810
  3. UNSPECIFIED INGREDIENT [Suspect]
     Active Substance: UNSPECIFIED INGREDIENT
     Dosage: DOSE UNKNOWN
     Route: 065
     Dates: start: 20220725, end: 20220807
  4. APIXABAN [Suspect]
     Active Substance: APIXABAN
     Dosage: DOSE UNKNOWN
     Route: 065
     Dates: start: 20220809
  5. ROSUVASTATIN [Concomitant]
     Active Substance: ROSUVASTATIN
     Dosage: DOSE UNKNOWN
     Route: 065
  6. BISOPROLOL FUMARATE [Concomitant]
     Active Substance: BISOPROLOL FUMARATE
     Dosage: DOSE UNKNOWN
     Route: 065

REACTIONS (2)
  - Haematemesis [Fatal]
  - Shock haemorrhagic [Fatal]

NARRATIVE: CASE EVENT DATE: 20220813
